FAERS Safety Report 6158877-8 (Version None)
Quarter: 2009Q2

REPORT INFORMATION
  Report Type: 
  Country: None (occurrence: None)
  Receive Date: 20090417
  Receipt Date: 20090409
  Transmission Date: 20091009
  Serious: Yes (Hospitalization)
  Sender: FDA-Public Use
  Company Number: US-WYE-H08901709

PATIENT
  Sex: Male

DRUGS (3)
  1. PRISTIQ [Suspect]
     Indication: DEPRESSION
     Dosage: 50 MG (FREQUENCY UNSPECIFIED)
     Route: 048
  2. PRISTIQ [Suspect]
     Dosage: 100 MG (FREQUENCY UNSPECIFIED)
     Route: 048
  3. PRISTIQ [Suspect]
     Dosage: 50 MG (FREQUENCY UNSPECIFIED)
     Route: 048

REACTIONS (3)
  - ABNORMAL BEHAVIOUR [None]
  - FEAR [None]
  - HYPONATRAEMIA [None]
